FAERS Safety Report 9969369 (Version 2)
Quarter: 2014Q1

REPORT INFORMATION
  Report Type: Spontaneous
  Country: AU (occurrence: AU)
  Receive Date: 20140306
  Receipt Date: 20140306
  Transmission Date: 20141002
  Serious: Yes (Other)
  Sender: FDA-Public Use
  Company Number: AU-AMGEN-AUSSP2013086380

PATIENT
  Age: 37 Year
  Sex: Female

DRUGS (1)
  1. XGEVA [Suspect]
     Indication: METASTASES TO BONE
     Dosage: 120 MG, Q4WK
     Route: 058
     Dates: start: 20130521

REACTIONS (6)
  - Amnesia [Not Recovered/Not Resolved]
  - Micturition urgency [Not Recovered/Not Resolved]
  - Nocturia [Not Recovered/Not Resolved]
  - Back pain [Not Recovered/Not Resolved]
  - Bone pain [Not Recovered/Not Resolved]
  - Feeling abnormal [Unknown]
